FAERS Safety Report 5754013-8 (Version None)
Quarter: 2008Q2

REPORT INFORMATION
  Report Type: 
  Country: None (occurrence: None)
  Receive Date: 20080530
  Receipt Date: 20080519
  Transmission Date: 20081010
  Serious: Yes (Death)
  Sender: FDA-Public Use
  Company Number: ZA-BRISTOL-MYERS SQUIBB COMPANY-14204309

PATIENT

DRUGS (2)
  1. SUSTIVA [Suspect]
     Indication: HIV INFECTION
     Route: 048
  2. KALETRA [Suspect]
     Indication: HIV INFECTION
     Dosage: 1 DOSAGE FORM = 400MG LOPINAVIR + 100MG RITONAVIR OR 533MG LOPINAVIR + 133MG RITONAVIR
     Route: 048

REACTIONS (1)
  - HEPATOTOXICITY [None]
